FAERS Safety Report 7969600-6 (Version None)
Quarter: 2011Q4

REPORT INFORMATION
  Report Type: 
  Country: None (occurrence: None)
  Receive Date: 20111212
  Receipt Date: 20111202
  Transmission Date: 20120403
  Serious: Yes (Other)
  Sender: FDA-Public Use
  Company Number: US-PFIZER INC-2011244832

PATIENT
  Sex: Male
  Weight: 89.796 kg

DRUGS (15)
  1. SEROQUEL [Concomitant]
     Indication: BIPOLAR II DISORDER
     Dosage: 125 MG, DAILY
  2. LOVAZA [Concomitant]
     Indication: BLOOD TRIGLYCERIDES ABNORMAL
     Dosage: 1000 MG, 2X/DAY
  3. NAPROXEN [Concomitant]
     Indication: TENDON DISORDER
  4. TOFRANIL [Suspect]
     Dosage: UNK
  5. NAPROXEN [Concomitant]
     Indication: ANTIINFLAMMATORY THERAPY
     Dosage: UNK
  6. NICOTROL [Suspect]
     Dosage: UNK
     Route: 045
     Dates: start: 20110401, end: 20110601
  7. NICOTROL [Suspect]
     Dosage: APPROXIMATELY 10 TIMES A DAY FROM MON TILL THURS; 4-5 TIMES A DAY FROM FRI- SUN
     Route: 045
     Dates: start: 20110701
  8. ASPIRIN [Concomitant]
     Indication: ANTICOAGULANT THERAPY
     Dosage: 81 MG, 1X/DAY
  9. NICOTROL [Suspect]
     Indication: SMOKING CESSATION THERAPY
     Dosage: UNK
     Route: 045
     Dates: start: 20010101
  10. NICOTROL [Suspect]
     Dosage: UNK
     Route: 045
     Dates: start: 20050101
  11. KLONOPIN [Concomitant]
     Indication: BIPOLAR II DISORDER
     Dosage: 2 MG, 4X/DAY
  12. PROTONIX [Concomitant]
     Indication: GASTROOESOPHAGEAL REFLUX DISEASE
     Dosage: 40 MG, 1X/DAY
  13. TRICOR [Concomitant]
     Indication: BLOOD TRIGLYCERIDES ABNORMAL
     Dosage: 145 MG, 1X/DAY
  14. NICOTROL [Suspect]
     Dosage: UNK
     Route: 045
     Dates: start: 20020101, end: 20030101
  15. PERCOCET [Concomitant]
     Indication: TENDON DISORDER
     Dosage: QUARTER OF A TABLET, DAILY

REACTIONS (8)
  - SOMNOLENCE [None]
  - CHEST DISCOMFORT [None]
  - FATIGUE [None]
  - BIPOLAR DISORDER [None]
  - CONFUSIONAL STATE [None]
  - CHRONIC OBSTRUCTIVE PULMONARY DISEASE [None]
  - URINARY TRACT OBSTRUCTION [None]
  - DYSPEPSIA [None]
